FAERS Safety Report 17124366 (Version 2)
Quarter: 2020Q1

REPORT INFORMATION
  Report Type: Spontaneous
  Country: CZ (occurrence: CZ)
  Receive Date: 20191206
  Receipt Date: 20200311
  Transmission Date: 20200409
  Serious: Yes (Death, Hospitalization, Other)
  Sender: FDA-Public Use
  Company Number: NVSC2019CZ058958

PATIENT
  Age: 36 Year
  Sex: Female

DRUGS (15)
  1. CISPLATIN. [Suspect]
     Active Substance: CISPLATIN
     Indication: CHEMOTHERAPY
     Dosage: UNK
     Route: 065
  2. DEXAMETHASONE. [Suspect]
     Active Substance: DEXAMETHASONE
     Indication: CHEMOTHERAPY
     Dosage: UNK
     Route: 065
  3. DACARBAZINE. [Suspect]
     Active Substance: DACARBAZINE
     Indication: HODGKIN^S DISEASE
     Dosage: FOUR CYCLES OF ABVD CHEMO
     Route: 065
  4. DOXORUBICIN [Suspect]
     Active Substance: DOXORUBICIN
     Indication: HODGKIN^S DISEASE
     Dosage: FOUR CYCLES OF ABVD CHEMO
     Route: 065
  5. ETOPOSIDE. [Suspect]
     Active Substance: ETOPOSIDE
     Indication: CHEMOTHERAPY
     Dosage: UNK
     Route: 065
  6. CARMUSTINE. [Suspect]
     Active Substance: CARMUSTINE
     Indication: CHEMOTHERAPY
     Dosage: UNK
     Route: 065
  7. BLEOMYCIN [Suspect]
     Active Substance: BLEOMYCIN SULFATE
     Indication: HODGKIN^S DISEASE
     Dosage: FOUR CYCLES OF ABVD CHEMO
     Route: 065
  8. SOLU-MEDROL [Concomitant]
     Active Substance: METHYLPREDNISOLONE SODIUM SUCCINATE
     Indication: IMMUNOSUPPRESSANT DRUG THERAPY
     Dosage: 1 MG/KG
     Route: 065
  9. CYCLOSPORINE. [Suspect]
     Active Substance: CYCLOSPORINE
     Indication: IMMUNOSUPPRESSION
     Dosage: UNK
     Route: 065
  10. MEDROL [Concomitant]
     Active Substance: METHYLPREDNISOLONE
     Indication: PRODUCT USED FOR UNKNOWN INDICATION
     Dosage: 8 MG, QD
     Route: 065
  11. CYTARABINE. [Suspect]
     Active Substance: CYTARABINE
     Indication: CHEMOTHERAPY
     Dosage: UNK
     Route: 065
  12. VINBLASTINE [Suspect]
     Active Substance: VINBLASTINE
     Indication: HODGKIN^S DISEASE
     Dosage: FOUR CYCLES OF ABVD CHEMO
     Route: 065
  13. NIVOLUMAB [Suspect]
     Active Substance: NIVOLUMAB
     Indication: PRODUCT USED FOR UNKNOWN INDICATION
     Dosage: 2 DOSES
     Route: 065
  14. MELPHALAN. [Suspect]
     Active Substance: MELPHALAN
     Indication: CHEMOTHERAPY
     Dosage: UNK
     Route: 065
  15. LOMUSTIN [Suspect]
     Active Substance: LOMUSTINE
     Indication: CHEMOTHERAPY
     Dosage: UNK
     Route: 065

REACTIONS (15)
  - Hodgkin^s disease recurrent [Unknown]
  - Brain death [Fatal]
  - Disease progression [Unknown]
  - Pyrexia [Recovered/Resolved]
  - Condition aggravated [Unknown]
  - Brain compression [Fatal]
  - Haemorrhage intracranial [Fatal]
  - Headache [Unknown]
  - Vomiting [Unknown]
  - Graft versus host disease [Unknown]
  - Disease recurrence [Unknown]
  - Aphthous ulcer [Unknown]
  - Therapy partial responder [Unknown]
  - Liver function test increased [Unknown]
  - Blood bilirubin increased [Unknown]
